FAERS Safety Report 10614061 (Version 2)
Quarter: 2015Q1

REPORT INFORMATION
  Report Type: Spontaneous
  Country: US (occurrence: US)
  Receive Date: 20141128
  Receipt Date: 20150103
  Transmission Date: 20150720
  Serious: Yes (Other)
  Sender: FDA-Public Use
  Company Number: US-JNJFOC-20141115744

PATIENT
  Age: 84 Year
  Sex: Female
  Weight: 64.86 kg

DRUGS (6)
  1. TYLENOL EXTRA STRENGTH [Suspect]
     Active Substance: ACETAMINOPHEN
     Indication: BACK PAIN
     Route: 048
  2. WARFARIN [Suspect]
     Active Substance: WARFARIN
     Indication: ANTICOAGULANT THERAPY
     Dosage: SINCE 20 YEARS
     Route: 065
  3. EQUATE PAIN RELIEVER PM [Concomitant]
     Indication: SLEEP DISORDER THERAPY
     Dosage: 1 PILL
     Route: 065
  4. PEPCID [Suspect]
     Active Substance: FAMOTIDINE
     Route: 048
  5. TYLENOL EXTRA STRENGTH [Suspect]
     Active Substance: ACETAMINOPHEN
     Indication: ARTHRALGIA
     Route: 048
  6. PEPCID [Suspect]
     Active Substance: FAMOTIDINE
     Indication: ANTACID THERAPY
     Route: 048

REACTIONS (3)
  - Anaemia [Not Recovered/Not Resolved]
  - Haemorrhage [Unknown]
  - Rash generalised [Unknown]
